FAERS Safety Report 6652916-3 (Version None)
Quarter: 2010Q1

REPORT INFORMATION
  Report Type: 
  Country: None (occurrence: None)
  Receive Date: 20100310
  Receipt Date: 20100211
  Transmission Date: 20100710
  Serious: Yes (Other)
  Sender: FDA-Public Use
  Company Number: US-1180858

PATIENT
  Sex: Male

DRUGS (1)
  1. TRIESENCE [Suspect]
     Indication: VISUAL ACUITY REDUCED
     Dosage: INTRAOCULAR
     Route: 031
     Dates: start: 20091028, end: 20091028

REACTIONS (3)
  - CATARACT [None]
  - INTRAOCULAR PRESSURE INCREASED [None]
  - VISUAL IMPAIRMENT [None]
